FAERS Safety Report 6198890-8 (Version None)
Quarter: 2009Q2

REPORT INFORMATION
  Report Type: 
  Country: None (occurrence: None)
  Receive Date: 20090519
  Receipt Date: 20090519
  Transmission Date: 20091009
  Serious: Yes (Other)
  Sender: FDA-Public Use
  Company Number: None

PATIENT
  Age: 30 Year
  Sex: Female
  Weight: 81.6475 kg

DRUGS (1)
  1. CYMBALTA [Suspect]
     Indication: DEPRESSION
     Dosage: 60 MGS. DAILY PO
     Route: 048
     Dates: start: 20080301, end: 20081001

REACTIONS (9)
  - ABASIA [None]
  - ARTHRALGIA [None]
  - BACK PAIN [None]
  - DEAFNESS UNILATERAL [None]
  - DYSSTASIA [None]
  - FATIGUE [None]
  - HYPOAESTHESIA [None]
  - MUSCLE ATROPHY [None]
  - MUSCLE FATIGUE [None]
